FAERS Safety Report 8880946 (Version 1)
Quarter: 2012Q4

REPORT INFORMATION
  Report Type: 
  Country: BR (occurrence: BR)
  Receive Date: 20121101
  Receipt Date: 20121101
  Transmission Date: 20130627
  Serious: Yes (Hospitalization)
  Sender: FDA-Public Use
  Company Number: BR-PFIZER INC-2012091390

PATIENT
  Age: 58 Year
  Sex: Male

DRUGS (6)
  1. ATENOLOL [Suspect]
     Indication: HYPERTENSION
     Dosage: 50 mg, daily
     Route: 048
     Dates: start: 2004
  2. ATENOLOL [Suspect]
     Indication: CARDIAC OUTPUT DECREASED
  3. CLOPIDOGREL [Suspect]
     Indication: CORONARY INSUFFICIENCY
     Dosage: UNK
     Route: 048
     Dates: start: 2004, end: 20120224
  4. ROSUVASTATIN [Suspect]
     Indication: HIGH CHOLESTEROL
     Dosage: 10 mg, daily
     Route: 048
     Dates: start: 2004
  5. TICAGRELOR [Suspect]
     Indication: CORONARY INSUFFICIENCY
     Dosage: 90 mg, UNK
     Route: 048
     Dates: start: 20120224, end: 20120401
  6. ASA [Concomitant]
     Indication: ANGIOPLASTY
     Dosage: 100 mg, daily
     Route: 048
     Dates: start: 2004

REACTIONS (3)
  - Coronary artery insufficiency [Recovered/Resolved]
  - Coronary artery restenosis [Recovered/Resolved]
  - Haematoma [Recovered/Resolved]
